FAERS Safety Report 6389755-7 (Version None)
Quarter: 2009Q4

REPORT INFORMATION
  Report Type: 
  Country: None (occurrence: None)
  Receive Date: 20091002
  Receipt Date: 20091002
  Transmission Date: 20100525
  Serious: Yes (Hospitalization)
  Sender: FDA-Public Use
  Company Number: None

PATIENT
  Age: 76 Year
  Sex: Male

DRUGS (3)
  1. CEPHALEXIN [Suspect]
     Indication: SINUSITIS
     Dosage: 250 MG TID PO
     Route: 048
     Dates: start: 20090427, end: 20090507
  2. CEPHALEXIN [Suspect]
     Indication: URINARY TRACT INFECTION
     Dosage: 250 MG TID PO
     Route: 048
     Dates: start: 20090427, end: 20090507
  3. CIPROFLOXACIN HYDROCHLORIDE [Suspect]
     Indication: URINARY TRACT INFECTION
     Dosage: 250 MG BID PO
     Route: 048
     Dates: start: 20090423, end: 20090427

REACTIONS (1)
  - CLOSTRIDIUM DIFFICILE COLITIS [None]
